FAERS Safety Report 5801083-4 (Version None)
Quarter: 2008Q3

REPORT INFORMATION
  Report Type: 
  Country: None (occurrence: None)
  Receive Date: 20080707
  Receipt Date: 20080702
  Transmission Date: 20090109
  Serious: Yes (Congenital Anomaly)
  Sender: FDA-Public Use
  Company Number: GB-RANBAXY-2008RR-16178

PATIENT

DRUGS (2)
  1. METFORMIN HCL [Suspect]
     Dosage: 500 MG, TID
     Route: 064
  2. LEVOTHYROXINE SODIUM [Concomitant]
     Indication: HYPOTHYROIDISM
     Route: 048

REACTIONS (1)
  - SPINA BIFIDA [None]
